FAERS Safety Report 11760154 (Version 2)
Quarter: 2015Q4

REPORT INFORMATION
  Report Type: Spontaneous
  Country: DE (occurrence: JP)
  Receive Date: 20151120
  Receipt Date: 20151211
  Transmission Date: 20160304
  Serious: No
  Sender: FDA-Public Use
  Company Number: JP-FRI-1000080980

PATIENT
  Age: 81 Year
  Sex: Female

DRUGS (5)
  1. MEMANTINE. [Suspect]
     Active Substance: MEMANTINE
     Dosage: 5 MG
     Route: 048
     Dates: start: 20150624, end: 20150708
  2. MEMANTINE. [Suspect]
     Active Substance: MEMANTINE
     Indication: DEMENTIA ALZHEIMER^S TYPE
     Dosage: 5 MG
     Route: 048
     Dates: start: 20150527, end: 20150610
  3. MEMANTINE. [Suspect]
     Active Substance: MEMANTINE
     Dosage: 10 MG
     Route: 048
     Dates: start: 20150610, end: 20150624
  4. MEMANTINE. [Suspect]
     Active Substance: MEMANTINE
     Dosage: 20 MG
     Route: 048
     Dates: start: 20150708, end: 20150722
  5. MEMANTINE. [Suspect]
     Active Substance: MEMANTINE
     Dosage: 10 MG
     Route: 048
     Dates: start: 20150624, end: 20150708

REACTIONS (1)
  - Depression [Recovered/Resolved]

NARRATIVE: CASE EVENT DATE: 20150624
